FAERS Safety Report 14872345 (Version 1)
Quarter: 2018Q2

REPORT INFORMATION
  Report Type: Report from Study
  Country: JP (occurrence: JP)
  Receive Date: 20180510
  Receipt Date: 20180510
  Transmission Date: 20180711
  Serious: Yes (Other)
  Sender: FDA-Public Use
  Company Number: JP-AMGEN-JPNNI2018063107

PATIENT
  Age: 66 Year
  Sex: Male
  Weight: 70 kg

DRUGS (34)
  1. RITUXIMAB. [Concomitant]
     Active Substance: RITUXIMAB
     Dosage: 375 MG/M2, UNK
     Route: 042
     Dates: start: 20170508, end: 20170508
  2. CYCLOPHOSPHAMIDE. [Concomitant]
     Active Substance: CYCLOPHOSPHAMIDE
     Dosage: 750 MG/M2, UNK
     Route: 042
     Dates: start: 20170620, end: 20170620
  3. THERARUBICIN                       /00963101/ [Concomitant]
     Active Substance: PIRARUBICIN HYDROCHLORIDE
     Indication: NON-HODGKIN^S LYMPHOMA STAGE III
     Dosage: 50 MG/M2, UNK
     Route: 042
     Dates: start: 20170418, end: 20170418
  4. PEGFILGRASTIM [Suspect]
     Active Substance: PEGFILGRASTIM
     Dosage: 3.6 MG, UNK
     Route: 058
     Dates: start: 20170713, end: 20170713
  5. CYCLOPHOSPHAMIDE. [Concomitant]
     Active Substance: CYCLOPHOSPHAMIDE
     Dosage: 750 MG/M2, UNK
     Route: 042
     Dates: start: 20170530, end: 20170530
  6. PREDNISOLONE. [Concomitant]
     Active Substance: PREDNISOLONE
     Dosage: 100 MG, UNK
     Route: 048
     Dates: start: 20170509, end: 20170513
  7. PREDNISOLONE. [Concomitant]
     Active Substance: PREDNISOLONE
     Dosage: 100 MG, UNK
     Route: 048
     Dates: start: 20170530, end: 20170603
  8. PREDNISOLONE. [Concomitant]
     Active Substance: PREDNISOLONE
     Dosage: 100 MG, UNK
     Route: 048
     Dates: start: 20170711, end: 20170715
  9. METHYCOBAL [Concomitant]
     Active Substance: METHYLCOBALAMIN
     Dosage: UNK
     Route: 048
  10. VINCRISTINE SULFATE. [Suspect]
     Active Substance: VINCRISTINE SULFATE
     Dosage: 0.7 MG/M2, UNK
     Route: 042
     Dates: start: 20170620, end: 20170620
  11. VINCRISTINE SULFATE. [Suspect]
     Active Substance: VINCRISTINE SULFATE
     Dosage: 0.7 MG/M2, UNK
     Route: 042
     Dates: start: 20170711, end: 20170711
  12. CYCLOPHOSPHAMIDE. [Concomitant]
     Active Substance: CYCLOPHOSPHAMIDE
     Dosage: 750 MG/M2, UNK
     Route: 042
     Dates: start: 20170711, end: 20170712
  13. THERARUBICIN                       /00963101/ [Concomitant]
     Active Substance: PIRARUBICIN HYDROCHLORIDE
     Dosage: 50 MG/M2, UNK
     Route: 042
     Dates: start: 20170620, end: 20170620
  14. BAKTAR [Concomitant]
     Active Substance: SULFAMETHOXAZOLE\TRIMETHOPRIM
     Dosage: UNK
     Route: 048
  15. NEXIUM [Concomitant]
     Active Substance: ESOMEPRAZOLE MAGNESIUM
     Dosage: UNK
     Route: 048
  16. PEGFILGRASTIM [Suspect]
     Active Substance: PEGFILGRASTIM
     Indication: COLONY STIMULATING FACTOR PROPHYLAXIS
     Dosage: 3.6 MG, UNK
     Route: 058
     Dates: start: 20170420, end: 20170420
  17. PEGFILGRASTIM [Suspect]
     Active Substance: PEGFILGRASTIM
     Dosage: 3.6 MG, UNK
     Route: 058
     Dates: start: 20170511, end: 20170511
  18. VINCRISTINE SULFATE. [Suspect]
     Active Substance: VINCRISTINE SULFATE
     Dosage: 0.7 MG/M2, UNK
     Route: 042
     Dates: start: 20170509, end: 20170509
  19. THERARUBICIN                       /00963101/ [Concomitant]
     Active Substance: PIRARUBICIN HYDROCHLORIDE
     Dosage: 50 MG/M2, UNK
     Route: 042
     Dates: start: 20170509, end: 20170509
  20. THERARUBICIN                       /00963101/ [Concomitant]
     Active Substance: PIRARUBICIN HYDROCHLORIDE
     Dosage: 50 MG/M2, UNK
     Route: 042
     Dates: start: 20170711, end: 20170711
  21. PREDNISOLONE. [Concomitant]
     Active Substance: PREDNISOLONE
     Dosage: 100 MG, UNK
     Route: 048
     Dates: start: 20170620, end: 20170624
  22. FLUCONAZOLE. [Concomitant]
     Active Substance: FLUCONAZOLE
     Dosage: UNK
     Route: 048
  23. PEGFILGRASTIM [Suspect]
     Active Substance: PEGFILGRASTIM
     Dosage: 3.6 MG, UNK
     Route: 058
     Dates: start: 20170601, end: 20170601
  24. RITUXIMAB. [Concomitant]
     Active Substance: RITUXIMAB
     Dosage: 375 MG/M2, UNK
     Route: 042
     Dates: start: 20170619, end: 20170619
  25. RITUXIMAB. [Concomitant]
     Active Substance: RITUXIMAB
     Dosage: 375 MG/M2, UNK
     Route: 042
     Dates: start: 20170710, end: 20170710
  26. VINCRISTINE SULFATE. [Suspect]
     Active Substance: VINCRISTINE SULFATE
     Dosage: 0.7 MG/M2, UNK
     Route: 042
     Dates: start: 20170530, end: 20170530
  27. RITUXIMAB. [Concomitant]
     Active Substance: RITUXIMAB
     Dosage: 375 MG/M2, UNK
     Route: 042
     Dates: start: 20170529, end: 20170529
  28. CYCLOPHOSPHAMIDE. [Concomitant]
     Active Substance: CYCLOPHOSPHAMIDE
     Indication: NON-HODGKIN^S LYMPHOMA STAGE III
     Dosage: 750 MG/M2, UNK
     Route: 042
     Dates: start: 20170418, end: 20170418
  29. THERARUBICIN                       /00963101/ [Concomitant]
     Active Substance: PIRARUBICIN HYDROCHLORIDE
     Dosage: 50 MG/M2, UNK
     Route: 042
     Dates: start: 20170530, end: 20170530
  30. PREDNISOLONE. [Concomitant]
     Active Substance: PREDNISOLONE
     Indication: NON-HODGKIN^S LYMPHOMA STAGE III
     Dosage: 100 MG, UNK
     Route: 048
     Dates: start: 20170418, end: 20170422
  31. PEGFILGRASTIM [Suspect]
     Active Substance: PEGFILGRASTIM
     Dosage: 3.6 MG, UNK
     Route: 058
     Dates: start: 20170622, end: 20170622
  32. VINCRISTINE SULFATE. [Suspect]
     Active Substance: VINCRISTINE SULFATE
     Indication: NON-HODGKIN^S LYMPHOMA STAGE III
     Dosage: 2 MG, UNK
     Route: 042
     Dates: start: 20170418, end: 20170418
  33. RITUXIMAB. [Concomitant]
     Active Substance: RITUXIMAB
     Indication: NON-HODGKIN^S LYMPHOMA STAGE III
     Dosage: 375 MG/M2, UNK
     Route: 042
     Dates: start: 20170417, end: 20170417
  34. CYCLOPHOSPHAMIDE. [Concomitant]
     Active Substance: CYCLOPHOSPHAMIDE
     Dosage: 750 MG/M2, UNK
     Route: 042
     Dates: start: 20170509, end: 20170509

REACTIONS (1)
  - Neuropathy peripheral [Recovering/Resolving]

NARRATIVE: CASE EVENT DATE: 20170427
